FAERS Safety Report 13697472 (Version 2)
Quarter: 2017Q4

REPORT INFORMATION
  Report Type: Spontaneous
  Country: US (occurrence: US)
  Receive Date: 20170628
  Receipt Date: 20171003
  Transmission Date: 20180320
  Serious: Yes (Other)
  Sender: FDA-Public Use
  Company Number: US-NOVOPROD-550727

PATIENT
  Age: 30 Year
  Sex: Male

DRUGS (1)
  1. NORDITROPIN [Suspect]
     Active Substance: SOMATROPIN
     Indication: PRODUCT USED FOR UNKNOWN INDICATION
     Dosage: 1.4 MG, QD (1.2 MG HS AND 0.2 MG MID-DAY)
     Route: 058

REACTIONS (2)
  - Prostate infection [Unknown]
  - Arthralgia [Recovered/Resolved]
